FAERS Safety Report 7682502-8 (Version None)
Quarter: 2011Q3

REPORT INFORMATION
  Report Type: 
  Country: None (occurrence: None)
  Receive Date: 20110815
  Receipt Date: 20110808
  Transmission Date: 20111222
  Serious: Yes (Other)
  Sender: FDA-Public Use
  Company Number: PHHY2011CA71756

PATIENT
  Age: 52 Year
  Sex: Female

DRUGS (1)
  1. FEMARA [Suspect]

REACTIONS (4)
  - MENSTRUATION IRREGULAR [None]
  - HAIR GROWTH ABNORMAL [None]
  - ASTHENIA [None]
  - WEIGHT INCREASED [None]
